FAERS Safety Report 25680204 (Version 2)
Quarter: 2025Q3

REPORT INFORMATION
  Report Type: Report from Study
  Country: US (occurrence: US)
  Receive Date: 20250814
  Receipt Date: 20250925
  Transmission Date: 20251020
  Serious: No
  Sender: SUNOVION
  Company Number: US-SUMITOMO PHARMA SWITZERLAND GMBH-2025SPA005856

PATIENT
  Age: 57 Year
  Sex: Male

DRUGS (3)
  1. ORGOVYX [Suspect]
     Active Substance: RELUGOLIX
     Indication: Prostate cancer
     Route: 048
  2. ORGOVYX [Suspect]
     Active Substance: RELUGOLIX
     Dosage: 120 MG, QD
     Route: 048
     Dates: start: 20250513
  3. NUBEQA [Concomitant]
     Active Substance: DAROLUTAMIDE

REACTIONS (8)
  - Blood pressure decreased [Unknown]
  - Radiation induced fatigue [Unknown]
  - Blood pressure increased [Unknown]
  - Blood cholesterol abnormal [Unknown]
  - Dizziness [Unknown]
  - Fatigue [Unknown]
  - Post procedural diarrhoea [Not Recovered/Not Resolved]
  - Product dose omission issue [Recovered/Resolved]
